FAERS Safety Report 23240011 (Version 1)
Quarter: 2023Q4

REPORT INFORMATION
  Report Type: Spontaneous
  Country: US (occurrence: US)
  Receive Date: 20231129
  Receipt Date: 20231129
  Transmission Date: 20240110
  Serious: No
  Sender: FDA-Public Use
  Company Number: US-PFIZER INC-202300384926

PATIENT
  Age: 28 Year
  Sex: Female

DRUGS (3)
  1. XELJANZ XR [Suspect]
     Active Substance: TOFACITINIB CITRATE
     Dosage: 11 MG PER DAY
     Route: 048
     Dates: start: 20230830
  2. IBUPROFEN [Concomitant]
     Active Substance: IBUPROFEN
  3. VICKS DAYQUIL/NYQUIL [Concomitant]

REACTIONS (2)
  - Aversion [Unknown]
  - Product dose omission issue [Unknown]
